FAERS Safety Report 13663067 (Version 1)
Quarter: 2017Q2

REPORT INFORMATION
  Report Type: Spontaneous
  Country: US (occurrence: US)
  Receive Date: 20170619
  Receipt Date: 20170619
  Transmission Date: 20170830
  Serious: Yes (Hospitalization)
  Sender: FDA-Public Use
  Company Number: US-BEH-2017081283

PATIENT
  Age: 79 Year
  Sex: Male
  Weight: 77.98 kg

DRUGS (29)
  1. HIZENTRA [Suspect]
     Active Substance: HUMAN IMMUNOGLOBULIN G
     Indication: IMMUNODEFICIENCY COMMON VARIABLE
     Dosage: 8 G, UNK
     Route: 058
     Dates: start: 20110504
  2. SEROQUEL [Concomitant]
     Active Substance: QUETIAPINE FUMARATE
  3. IMODIUM A-D [Concomitant]
     Active Substance: LOPERAMIDE HYDROCHLORIDE
  4. DIPHENHYDRAMINE. [Concomitant]
     Active Substance: DIPHENHYDRAMINE
  5. AZITHROMYCIN ANHYDROUS. [Concomitant]
     Active Substance: AZITHROMYCIN ANHYDROUS
  6. MIDODRINE [Concomitant]
     Active Substance: MIDODRINE
  7. VALIUM [Concomitant]
     Active Substance: DIAZEPAM
  8. ASCORBIC ACID (VITAMIN C), COMBINATIONS [Concomitant]
  9. GLUCOSAMINE CHONDROITIN            /01430901/ [Concomitant]
  10. CYANOCOBALAMIN. [Concomitant]
     Active Substance: CYANOCOBALAMIN
  11. ETHAMBUTOL [Concomitant]
     Active Substance: ETHAMBUTOL HYDROCHLORIDE
  12. FLUDROCORTISONE [Concomitant]
     Active Substance: FLUDROCORTISONE
  13. ASPIRIN. [Concomitant]
     Active Substance: ASPIRIN
  14. PROMETHAZINE - CODEINE             /01129901/ [Concomitant]
  15. HIZENTRA [Suspect]
     Active Substance: HUMAN IMMUNOGLOBULIN G
     Dosage: UNK
     Route: 058
  16. AMITRIPTYLINE [Concomitant]
     Active Substance: AMITRIPTYLINE
  17. BRIMONIDINE [Concomitant]
     Active Substance: BRIMONIDINE TARTRATE
  18. ZOLPIDEM [Concomitant]
     Active Substance: ZOLPIDEM\ZOLPIDEM TARTRATE
  19. ALLOPURINOL. [Concomitant]
     Active Substance: ALLOPURINOL
  20. TAMSULOSIN [Concomitant]
     Active Substance: TAMSULOSIN
  21. RIFAMPIN. [Concomitant]
     Active Substance: RIFAMPIN
  22. LAMOTRIGINE. [Concomitant]
     Active Substance: LAMOTRIGINE
  23. FOLIC ACID. [Concomitant]
     Active Substance: FOLIC ACID
  24. LIDOCAINE. [Concomitant]
     Active Substance: LIDOCAINE
  25. EPINEPHRINE. [Concomitant]
     Active Substance: EPINEPHRINE
  26. CALCIUM+D3 [Concomitant]
  27. VITAMIN D                          /00107901/ [Concomitant]
     Active Substance: ERGOCALCIFEROL
  28. CYMBALTA [Concomitant]
     Active Substance: DULOXETINE HYDROCHLORIDE
  29. FERROUS SULFATE. [Concomitant]
     Active Substance: FERROUS SULFATE

REACTIONS (1)
  - Myocardial infarction [Recovered/Resolved]

NARRATIVE: CASE EVENT DATE: 20170601
